FAERS Safety Report 11680357 (Version 2)
Quarter: 2015Q4

REPORT INFORMATION
  Report Type: Spontaneous
  Country: US (occurrence: US)
  Receive Date: 20151027
  Receipt Date: 20151104
  Transmission Date: 20160304
  Serious: No
  Sender: FDA-Public Use
  Company Number: US-ELI_LILLY_AND_COMPANY-US201009000473

PATIENT
  Age: 85 Year
  Sex: Female

DRUGS (3)
  1. ANTIHYPERTENSIVES [Concomitant]
     Active Substance: UNSPECIFIED INGREDIENT
  2. THYROID THERAPY [Concomitant]
     Active Substance: UNSPECIFIED INGREDIENT
  3. FORTEO [Suspect]
     Active Substance: TERIPARATIDE
     Indication: OSTEOPOROSIS
     Dosage: 20 UG, DAILY (1/D)
     Dates: start: 20100823, end: 201103

REACTIONS (9)
  - Hypokinesia [Unknown]
  - Asthenia [Unknown]
  - Fall [Unknown]
  - Pain in extremity [Unknown]
  - Wrist fracture [Recovered/Resolved]
  - Injection site bruising [Recovering/Resolving]
  - Gait disturbance [Not Recovered/Not Resolved]
  - Muscular weakness [Not Recovered/Not Resolved]
  - Blood calcium increased [Unknown]

NARRATIVE: CASE EVENT DATE: 20100824
